FAERS Safety Report 10516571 (Version 1)
Quarter: 2014Q4

REPORT INFORMATION
  Report Type: Spontaneous
  Country: US (occurrence: None)
  Receive Date: 20141003
  Receipt Date: 20141003
  Transmission Date: 20150528
  Serious: Yes (Other)
  Sender: FDA-Public Use
  Company Number: 1365295

PATIENT
  Age: 55 Year
  Sex: Female
  Weight: 68.95 kg

DRUGS (7)
  1. RIBASPHERE RIBAPAK [Suspect]
     Active Substance: RIBAVIRIN
     Indication: HEPATITIS C
     Dosage: IN DIVIDED DOSAGE AS 600MG/400MG (1 IN 1 D), ORAL
     Route: 048
     Dates: start: 20140213
  2. NICOTINE PATCH (NICOTINE) [Concomitant]
  3. WELLBUTRIN [Concomitant]
     Active Substance: BUPROPION HYDROCHLORIDE
  4. SOVALDI [Suspect]
     Active Substance: SOFOSBUVIR
     Indication: HEPATITIS C
     Route: 048
     Dates: start: 20140213
  5. PEGASYS [Suspect]
     Active Substance: PEGINTERFERON ALFA-2A
     Indication: HEPATITIS C
     Route: 058
     Dates: start: 20140213
  6. CORTISONE (CORTISONE ACETATE) [Concomitant]
  7. TRAMADOL (TRAMADOL) [Concomitant]
     Active Substance: TRAMADOL

REACTIONS (8)
  - Insomnia [None]
  - Injection site rash [None]
  - Infection [None]
  - Pain [None]
  - Mood swings [None]
  - Depression [None]
  - Crying [None]
  - Irritability [None]

NARRATIVE: CASE EVENT DATE: 20140213
